FAERS Safety Report 8484736-1 (Version None)
Quarter: 2012Q3

REPORT INFORMATION
  Report Type: 
  Country: None (occurrence: None)
  Receive Date: 20120703
  Receipt Date: 20120524
  Transmission Date: 20120928
  Serious: No
  Sender: FDA-Public Use
  Company Number: US-TEVA-340350USA

PATIENT
  Sex: Male
  Weight: 80.812 kg

DRUGS (3)
  1. ERGOCALCIFEROL [Concomitant]
     Indication: SUPPLEMENTATION THERAPY
     Route: 048
  2. NUVIGIL [Suspect]
     Indication: CIRCADIAN RHYTHM SLEEP DISORDER
     Route: 048
     Dates: start: 20111001, end: 20120521
  3. VALSARTAN [Concomitant]
     Indication: HYPERTENSION
     Dosage: 80 MILLIGRAM;
     Route: 048

REACTIONS (1)
  - RASH [None]
